FAERS Safety Report 7537801-7 (Version None)
Quarter: 2011Q2

REPORT INFORMATION
  Report Type: 
  Country: None (occurrence: None)
  Receive Date: 20110609
  Receipt Date: 20110525
  Transmission Date: 20111010
  Serious: No
  Sender: FDA-Public Use
  Company Number: US-B.I. PHARMACEUTICALS,INC./RIDGEFIELD-2011-BP-02209BP

PATIENT
  Sex: Female
  Weight: 88.9 kg

DRUGS (13)
  1. RYTHMOL [Suspect]
     Indication: HEART RATE IRREGULAR
     Dosage: 150 MG
     Route: 048
     Dates: start: 20110111
  2. MULTI VITE [Concomitant]
     Indication: SUPPLEMENTATION THERAPY
     Route: 048
     Dates: start: 20040101
  3. ZOCOR [Concomitant]
     Indication: BLOOD CHOLESTEROL INCREASED
     Dosage: 20 MG
     Route: 048
     Dates: start: 20100801
  4. MACROBID [Concomitant]
     Indication: URINARY TRACT INFECTION
     Dosage: 100 MG
     Route: 048
     Dates: start: 20040101
  5. DETROL [Concomitant]
     Indication: POLLAKIURIA
     Dosage: 4 MG
     Route: 048
     Dates: start: 20070101
  6. PRADAXA [Suspect]
     Indication: ANTICOAGULANT THERAPY
  7. VERAPAMIL [Suspect]
     Indication: HEART RATE IRREGULAR
     Dosage: 120 MG
     Route: 048
     Dates: start: 20110111
  8. RANITIDINE HCL [Concomitant]
     Indication: GASTROOESOPHAGEAL REFLUX DISEASE
     Dosage: 300 MG
  9. PRADAXA [Suspect]
     Indication: CEREBROVASCULAR ACCIDENT PROPHYLAXIS
  10. ACETAMINOPHEN [Concomitant]
  11. PROGESTERONE [Concomitant]
     Route: 061
  12. PRADAXA [Suspect]
     Indication: ATRIAL FIBRILLATION
     Dosage: 300 MG
     Route: 048
     Dates: start: 20110108
  13. METAXALONE [Concomitant]
     Indication: MUSCLE SPASMS

REACTIONS (5)
  - THROAT IRRITATION [None]
  - ERUCTATION [None]
  - GASTROOESOPHAGEAL REFLUX DISEASE [None]
  - THROAT TIGHTNESS [None]
  - CHEST PAIN [None]
